FAERS Safety Report 5669324-4 (Version None)
Quarter: 2008Q1

REPORT INFORMATION
  Report Type: 
  Country: None (occurrence: None)
  Receive Date: 20080317
  Receipt Date: 20080305
  Transmission Date: 20080703
  Serious: Yes (Other)
  Sender: FDA-Public Use
  Company Number: PHBS2008GR03193

PATIENT
  Age: 28 Year
  Sex: Female

DRUGS (2)
  1. IMATINIB [Suspect]
     Indication: CHRONIC MYELOID LEUKAEMIA
     Dosage: 400 MG/D
     Route: 065
     Dates: start: 20050101, end: 20060701
  2. IMATINIB [Suspect]
     Dosage: 600 MG/D
     Route: 065
     Dates: start: 20060701

REACTIONS (7)
  - AMENORRHOEA [None]
  - BLOOD FOLLICLE STIMULATING HORMONE INCREASED [None]
  - MUSCLE SPASMS [None]
  - OLIGOMENORRHOEA [None]
  - OVARIAN FAILURE [None]
  - SKIN DISCOLOURATION [None]
  - ULTRASOUND OVARY ABNORMAL [None]
